FAERS Safety Report 6377683-2 (Version None)
Quarter: 2009Q3

REPORT INFORMATION
  Report Type: 
  Country: None (occurrence: None)
  Receive Date: 20090925
  Receipt Date: 20090911
  Transmission Date: 20100115
  Serious: Yes (Life-Threatening)
  Sender: FDA-Public Use
  Company Number: TR-CELGENEUS-161-C5013-09090853

PATIENT
  Sex: Male
  Weight: 80 kg

DRUGS (4)
  1. CC-5013 [Suspect]
     Indication: MULTIPLE MYELOMA
     Route: 048
     Dates: start: 20090615, end: 20090620
  2. CC-5013 [Suspect]
     Route: 048
     Dates: start: 20090507, end: 20090522
  3. DEXAMETHASONE 4MG TAB [Concomitant]
     Indication: MULTIPLE MYELOMA
     Route: 065
     Dates: start: 20090615, end: 20090620
  4. DEXAMETHASONE 4MG TAB [Concomitant]
     Route: 065
     Dates: start: 20090507, end: 20090522

REACTIONS (1)
  - THROMBOCYTOPENIA [None]
